FAERS Safety Report 11304809 (Version 1)
Quarter: 2015Q3

REPORT INFORMATION
  Report Type: Spontaneous
  Country: JP (occurrence: JP)
  Receive Date: 20150723
  Receipt Date: 20150723
  Transmission Date: 20151125
  Serious: Yes (Other)
  Sender: FDA-Public Use
  Company Number: JP-PFIZER INC-2015243309

PATIENT
  Age: 18 Year
  Sex: Female

DRUGS (2)
  1. EBASTEL [Concomitant]
     Active Substance: EBASTINE
     Dosage: UNK
  2. ATARAX-P [Suspect]
     Active Substance: HYDROXYZINE HYDROCHLORIDE
     Dosage: UNK
     Dates: start: 201507

REACTIONS (2)
  - Vitreous floaters [Unknown]
  - Epistaxis [Unknown]

NARRATIVE: CASE EVENT DATE: 201507
